FAERS Safety Report 25520341 (Version 1)
Quarter: 2025Q3

REPORT INFORMATION
  Report Type: Spontaneous
  Country: EU (occurrence: EU)
  Receive Date: 20250704
  Receipt Date: 20250704
  Transmission Date: 20251021
  Serious: Yes (Other)
  Sender: DR REDDYS
  Company Number: None

PATIENT
  Age: 66 Year

DRUGS (4)
  1. DESLORATADINE [Suspect]
     Active Substance: DESLORATADINE
     Indication: Dermatitis atopic
     Dosage: FOA: TABLET
  2. DESLORATADINE [Suspect]
     Active Substance: DESLORATADINE
     Dosage: FOA: TABLET
     Dates: end: 202302
  3. RINVOQ [Suspect]
     Active Substance: UPADACITINIB
     Indication: Dermatitis atopic
     Route: 048
  4. OMALIZUMAB [Suspect]
     Active Substance: OMALIZUMAB
     Indication: Dermatitis atopic
     Dates: end: 202302

REACTIONS (11)
  - Loss of consciousness [Unknown]
  - Syncope [Unknown]
  - Paraesthesia [Unknown]
  - Discomfort [Unknown]
  - Cardiovascular insufficiency [Unknown]
  - Cold urticaria [Unknown]
  - Malaise [Unknown]
  - Erythema [Unknown]
  - Cardiovascular disorder [Unknown]
  - Dizziness [Unknown]
  - Drug ineffective [Unknown]

NARRATIVE: CASE EVENT DATE: 20220101
